FAERS Safety Report 7765108-1 (Version None)
Quarter: 2011Q3

REPORT INFORMATION
  Report Type: 
  Country: None (occurrence: None)
  Receive Date: 20110921
  Receipt Date: 20110914
  Transmission Date: 20111222
  Serious: Yes (Other)
  Sender: FDA-Public Use
  Company Number: IN-ALLERGAN-1112353US

PATIENT
  Age: 62 Year
  Sex: Male

DRUGS (1)
  1. PREDNISOLONE ACETATE [Suspect]
     Indication: PRODUCT USED FOR UNKNOWN INDICATION
     Dosage: UNK
     Route: 047

REACTIONS (9)
  - CORNEAL EPITHELIUM DEFECT [None]
  - GRAFT COMPLICATION [None]
  - CORNEAL INFILTRATES [None]
  - ULCERATIVE KERATITIS [None]
  - VISUAL ACUITY REDUCED [None]
  - HYPOPYON [None]
  - EYE PAIN [None]
  - OCULAR HYPERAEMIA [None]
  - EYE INFECTION [None]
